FAERS Safety Report 19870680 (Version 2)
Quarter: 2022Q1

REPORT INFORMATION
  Report Type: Other
  Country: CN (occurrence: CN)
  Receive Date: 20210923
  Receipt Date: 20220103
  Transmission Date: 20220423
  Serious: Yes (Other)
  Sender: FDA-Public Use
  Company Number: CN-002147023-NVSC2021CN212994

PATIENT

DRUGS (3)
  1. RANIBIZUMAB [Suspect]
     Active Substance: RANIBIZUMAB
     Indication: Diabetic retinal oedema
     Dosage: 1 DF, QMO (0.05 MG/0.5 ML FIRST INJECTION)
     Route: 050
  2. RANIBIZUMAB [Suspect]
     Active Substance: RANIBIZUMAB
     Dosage: 1 DF, QMO (0.05 MG/0.5 ML SECOND INJECTION)
     Route: 050
  3. RANIBIZUMAB [Suspect]
     Active Substance: RANIBIZUMAB
     Dosage: 1 DF, QMO (0.05 MG/0.5 ML THIRD INJECTION)
     Route: 050

REACTIONS (1)
  - Vitreous haemorrhage [Unknown]
